FAERS Safety Report 6413712-5 (Version None)
Quarter: 2009Q4

REPORT INFORMATION
  Report Type: 
  Country: None (occurrence: None)
  Receive Date: 20091023
  Receipt Date: 20091023
  Transmission Date: 20100525
  Serious: No
  Sender: FDA-Public Use
  Company Number: None

PATIENT
  Age: 52 Year
  Sex: Male
  Weight: 81.1939 kg

DRUGS (1)
  1. RANITIDINE [Suspect]
     Indication: GASTROOESOPHAGEAL REFLUX DISEASE
     Dosage: 150MG 2X A DAY PO
     Route: 048
     Dates: start: 20090101, end: 20091020

REACTIONS (5)
  - BLOOD URINE PRESENT [None]
  - RED BLOOD CELLS SEMEN [None]
  - TARDIVE DYSKINESIA [None]
  - TRISMUS [None]
  - YAWNING [None]
